FAERS Safety Report 9281564 (Version 6)
Quarter: 2014Q2

REPORT INFORMATION
  Report Type: Spontaneous
  Country: US (occurrence: US)
  Receive Date: 20130509
  Receipt Date: 20140610
  Transmission Date: 20141212
  Serious: Yes (Hospitalization)
  Sender: FDA-Public Use
  Company Number: US-009507513-1305USA004832

PATIENT
  Sex: Female
  Weight: 77.98 kg

DRUGS (2)
  1. NUVARING [Suspect]
     Indication: CONTRACEPTION
     Dosage: UNK
     Route: 067
     Dates: start: 20080910, end: 20100817
  2. ZYRTEC [Concomitant]
     Indication: PRODUCT USED FOR UNKNOWN INDICATION
     Dosage: UNK
     Dates: start: 2000

REACTIONS (11)
  - Deep vein thrombosis [Recovered/Resolved with Sequelae]
  - Ligament sprain [Unknown]
  - Lower limb fracture [Unknown]
  - Pain in extremity [Unknown]
  - Drug hypersensitivity [Unknown]
  - Drug hypersensitivity [Unknown]
  - Post thrombotic syndrome [Unknown]
  - Fatigue [Unknown]
  - Constipation [Unknown]
  - Pollakiuria [Unknown]
  - Peripheral venous disease [Unknown]
